FAERS Safety Report 21136963 (Version 3)
Quarter: 2022Q3

REPORT INFORMATION
  Report Type: Other
  Country: US (occurrence: US)
  Receive Date: 20220727
  Receipt Date: 20220908
  Transmission Date: 20221026
  Serious: Yes (Hospitalization, Other)
  Sender: FDA-Public Use
  Company Number: US-INTERCEPT-PM2022000995

PATIENT
  Age: 76 Year
  Sex: Female

DRUGS (4)
  1. OCALIVA [Suspect]
     Active Substance: OBETICHOLIC ACID
     Indication: Primary biliary cholangitis
     Dosage: 5 MILLIGRAM, QW
     Route: 048
     Dates: start: 20170912
  2. OCALIVA [Suspect]
     Active Substance: OBETICHOLIC ACID
     Dosage: 10 MILLIGRAM, QW
     Route: 048
  3. OCALIVA [Suspect]
     Active Substance: OBETICHOLIC ACID
     Dosage: 5 MG, EVERY 5 DAYS
     Route: 048
     Dates: start: 2018
  4. OCALIVA [Suspect]
     Active Substance: OBETICHOLIC ACID
     Dosage: 5 MILLIGRAM, QW
     Route: 048
     Dates: start: 20220216, end: 202203

REACTIONS (7)
  - Poor peripheral circulation [Unknown]
  - Leg amputation [Recovering/Resolving]
  - Joint arthroplasty [Recovered/Resolved]
  - Upper limb fracture [Recovered/Resolved]
  - Fall [Recovered/Resolved]
  - Skin discolouration [Not Recovered/Not Resolved]
  - Therapy interrupted [Not Recovered/Not Resolved]

NARRATIVE: CASE EVENT DATE: 20220301
